FAERS Safety Report 9523348 (Version 1)
Quarter: 2013Q3

REPORT INFORMATION
  Report Type: Report from Study
  Country: AT (occurrence: AT)
  Receive Date: 20130913
  Receipt Date: 20130913
  Transmission Date: 20140515
  Serious: Yes (Hospitalization, Other)
  Sender: FDA-Public Use
  Company Number: AT-ABBOTT-13P-009-1146285-00

PATIENT
  Age: 26 Year
  Sex: Female

DRUGS (4)
  1. HUMIRA [Suspect]
     Indication: CROHN^S DISEASE
     Route: 058
     Dates: start: 20130118
  2. PANTOLOC [Concomitant]
     Indication: PROPHYLAXIS AGAINST GASTROINTESTINAL ULCER
     Dosage: 1-0-0
     Route: 048
     Dates: start: 2012
  3. PURINETHOL [Concomitant]
     Indication: CROHN^S DISEASE
     Dosage: 1/2-0-0
     Route: 048
     Dates: start: 2009
  4. PENTASA [Concomitant]
     Indication: CROHN^S DISEASE
     Dosage: 4-0-0
     Route: 048
     Dates: start: 20130521

REACTIONS (4)
  - Abortion spontaneous [Unknown]
  - Vomiting [Recovering/Resolving]
  - Erythema nodosum [Unknown]
  - Unintended pregnancy [Unknown]
